FAERS Safety Report 4298422-5 (Version None)
Quarter: 2004Q1

REPORT INFORMATION
  Report Type: 
  Country: None (occurrence: None)
  Receive Date: 20040218
  Receipt Date: 20030715
  Transmission Date: 20041129
  Serious: Yes (Other)
  Sender: FDA-Public Use
  Company Number: US-BRISTOL-MYERS SQUIBB COMPANY-12325460

PATIENT
  Age: 55 Year
  Sex: Female
  Weight: 112 kg

DRUGS (12)
  1. STADOL [Suspect]
     Dosage: DURATION OF THERAPY: 2 TO 3 YEARS.
     Route: 045
  2. PHENERGAN [Concomitant]
  3. ACETAMINOPHEN W/ PROPOXYPHENE HCL [Concomitant]
  4. CYCLOBENZAPRINE [Concomitant]
  5. BUSPAR [Concomitant]
  6. ESGIC [Concomitant]
  7. DEMEROL [Concomitant]
  8. HYDROCODONE + ACETAMINOPHEN [Concomitant]
  9. AMBIEN [Concomitant]
  10. PROMETHAZINE [Concomitant]
  11. LORTAB [Concomitant]
  12. DEMEROL [Concomitant]

REACTIONS (2)
  - DEPENDENCE [None]
  - DRUG WITHDRAWAL SYNDROME [None]
